FAERS Safety Report 13626888 (Version 1)
Quarter: 2017Q2

REPORT INFORMATION
  Report Type: Spontaneous
  Country: US (occurrence: US)
  Receive Date: 20170607
  Receipt Date: 20170607
  Transmission Date: 20170830
  Serious: Yes (Hospitalization)
  Sender: FDA-Public Use
  Company Number: None

PATIENT
  Age: 27 Year
  Sex: Male
  Weight: 123.7 kg

DRUGS (3)
  1. ZOSYN [Concomitant]
     Active Substance: PIPERACILLIN SODIUM\TAZOBACTAM SODIUM
  2. DYNA-HEX 4 [Suspect]
     Active Substance: CHLORHEXIDINE GLUCONATE
     Indication: POSTOPERATIVE CARE
     Dosage: QUANTITY:4 DROP(S);OTHER ROUTE:MIXED WITH WATER AS A SOAK/RINSE?
     Dates: start: 20170606, end: 20170606
  3. PERCOCET [Concomitant]
     Active Substance: ACETAMINOPHEN\OXYCODONE HYDROCHLORIDE

REACTIONS (4)
  - Application site swelling [None]
  - Application site vesicles [None]
  - Application site rash [None]
  - Application site erythema [None]

NARRATIVE: CASE EVENT DATE: 20170606
